FAERS Safety Report 23073517 (Version 1)
Quarter: 2023Q4

REPORT INFORMATION
  Report Type: Spontaneous
  Country: US (occurrence: US)
  Receive Date: 20231017
  Receipt Date: 20231017
  Transmission Date: 20240110
  Serious: Yes (Hospitalization, Other)
  Sender: FDA-Public Use
  Company Number: US-BRISTOL-MYERS SQUIBB COMPANY-2023-146875

PATIENT
  Age: 77 Year
  Sex: Female
  Weight: 53.43 kg

DRUGS (17)
  1. REVLIMID [Suspect]
     Active Substance: LENALIDOMIDE
     Indication: Myelodysplastic syndrome
     Dosage: FREQUENCY: DAILY X 21 DAYS
     Route: 048
     Dates: start: 20220728, end: 20231010
  2. ACETAMINOPHEN [Concomitant]
     Active Substance: ACETAMINOPHEN
     Indication: Product used for unknown indication
  3. ASPIRIN [Concomitant]
     Active Substance: ASPIRIN
     Indication: Product used for unknown indication
  4. ATORVASTATIN [Concomitant]
     Active Substance: ATORVASTATIN
     Indication: Product used for unknown indication
  5. CALCIUM CARBONATE\VITAMIN D [Concomitant]
     Active Substance: CALCIUM CARBONATE\VITAMIN D
     Indication: Product used for unknown indication
     Dosage: CALCIUM 600 MG + D
  6. CLARITIN [Concomitant]
     Active Substance: LORATADINE
     Indication: Product used for unknown indication
  7. LIDOCAINE [Concomitant]
     Active Substance: LIDOCAINE
     Indication: Product used for unknown indication
  8. OMEPRAZOLE [Concomitant]
     Active Substance: OMEPRAZOLE
     Indication: Product used for unknown indication
  9. TORSEMIDE [Concomitant]
     Active Substance: TORSEMIDE
     Indication: Product used for unknown indication
  10. AMLODIPINE [Concomitant]
     Active Substance: AMLODIPINE BESYLATE
     Indication: Product used for unknown indication
  11. VITAMIN D NOS [Concomitant]
     Active Substance: VITAMIN D NOS
     Indication: Product used for unknown indication
     Dosage: 1000 UNITS
  12. METOPROLOL SUCCINATE [Concomitant]
     Active Substance: METOPROLOL SUCCINATE
     Indication: Product used for unknown indication
  13. XARELTO [Concomitant]
     Active Substance: RIVAROXABAN
     Indication: Product used for unknown indication
  14. ALLOPURINOL [Concomitant]
     Active Substance: ALLOPURINOL
     Indication: Product used for unknown indication
  15. K DUR [Concomitant]
     Indication: Product used for unknown indication
  16. HUMULIN N [Concomitant]
     Active Substance: INSULIN HUMAN
     Indication: Product used for unknown indication
  17. HUMULIN R [Concomitant]
     Active Substance: INSULIN HUMAN
     Indication: Product used for unknown indication

REACTIONS (2)
  - Atrial fibrillation [Unknown]
  - Off label use [Unknown]

NARRATIVE: CASE EVENT DATE: 20231010
